FAERS Safety Report 5632147-6 (Version None)
Quarter: 2008Q1

REPORT INFORMATION
  Report Type: 
  Country: None (occurrence: None)
  Receive Date: 20080220
  Receipt Date: 20080213
  Transmission Date: 20080703
  Serious: Yes (Hospitalization)
  Sender: FDA-Public Use
  Company Number: US-MERCK-0710USA04386

PATIENT
  Age: 70 Year
  Sex: Male

DRUGS (3)
  1. JANUMET [Suspect]
     Indication: DIABETES MELLITUS
     Route: 048
     Dates: start: 20070101
  2. JANUVIA [Concomitant]
     Route: 048
  3. GLUCOPHAGE [Suspect]
     Route: 065

REACTIONS (3)
  - CONSTIPATION [None]
  - HAEMORRHAGE [None]
  - INTESTINAL OBSTRUCTION [None]
